FAERS Safety Report 11274834 (Version 1)
Quarter: 2015Q3

REPORT INFORMATION
  Report Type: Spontaneous
  Country: US (occurrence: US)
  Receive Date: 20150716
  Receipt Date: 20150716
  Transmission Date: 20151125
  Serious: Yes (Hospitalization, Other)
  Sender: FDA-Public Use
  Company Number: US-AMGEN-USASP2015058980

PATIENT
  Age: 71 Year
  Sex: Female

DRUGS (1)
  1. PROLIA [Suspect]
     Active Substance: DENOSUMAB
     Indication: PRODUCT USED FOR UNKNOWN INDICATION
     Dosage: UNK
     Route: 065

REACTIONS (6)
  - Rash [Unknown]
  - Angina pectoris [Unknown]
  - Injection site mass [Unknown]
  - Injection site pain [Unknown]
  - Injection site warmth [Unknown]
  - Injection site bruising [Unknown]

NARRATIVE: CASE EVENT DATE: 201506
